FAERS Safety Report 6664363-9 (Version None)
Quarter: 2010Q2

REPORT INFORMATION
  Report Type: 
  Country: None (occurrence: None)
  Receive Date: 20100401
  Receipt Date: 20100325
  Transmission Date: 20101027
  Serious: Yes (Other)
  Sender: FDA-Public Use
  Company Number: GXKR2010SA03530

PATIENT
  Age: 50 Year
  Sex: Male

DRUGS (4)
  1. DOXORUBICIN (NGX) [Suspect]
     Indication: B-CELL LYMPHOMA STAGE IV
     Dosage: 50 MG/M2 FOR 1 DAY, 6 CYCLES
     Route: 042
  2. VINCRISTINE (NGX) [Suspect]
     Indication: B-CELL LYMPHOMA STAGE IV
     Dosage: 1.4 MG/M2 FOR 1 DAY, 6 CYCLES
     Route: 042
  3. PREDNISONE TAB [Suspect]
     Indication: B-CELL LYMPHOMA STAGE IV
     Dosage: 100 MG/DAY, 6 CYCLES
     Route: 042
  4. CYCLOPHOSPHAMIDE [Suspect]
     Indication: B-CELL LYMPHOMA STAGE IV
     Dosage: 750 MG/M2 FOR 1 DAY
     Route: 042

REACTIONS (3)
  - EXPLORATIVE LAPAROTOMY [None]
  - GASTROSPLENIC FISTULA [None]
  - SPLENECTOMY [None]
